FAERS Safety Report 5757630-4 (Version None)
Quarter: 2008Q2

REPORT INFORMATION
  Report Type: 
  Country: None (occurrence: None)
  Receive Date: 20080603
  Receipt Date: 20080523
  Transmission Date: 20081010
  Serious: Yes (Hospitalization)
  Sender: FDA-Public Use
  Company Number: PFIZER INC-2008044219

PATIENT
  Sex: Female
  Weight: 63.5 kg

DRUGS (6)
  1. SUTENT [Suspect]
     Indication: RENAL CELL CARCINOMA
     Route: 048
     Dates: start: 20080326, end: 20080407
  2. CALTRATE [Concomitant]
     Route: 048
  3. LIPITOR [Concomitant]
     Route: 048
  4. VITAMIN CAP [Concomitant]
     Route: 048
  5. VALSARTAN [Concomitant]
     Route: 048
     Dates: start: 20080402, end: 20080404
  6. VALSARTAN [Concomitant]
     Route: 048
     Dates: start: 20080404, end: 20080408

REACTIONS (1)
  - CORONARY ARTERY DISSECTION [None]
